FAERS Safety Report 24088607 (Version 1)
Quarter: 2024Q3

REPORT INFORMATION
  Report Type: Spontaneous
  Country: FR (occurrence: FR)
  Receive Date: 20240715
  Receipt Date: 20240715
  Transmission Date: 20241016
  Serious: Yes (Other)
  Sender: AUROBINDO
  Company Number: FR-MYLANLABS-2024M1061036

PATIENT
  Age: 33 Year
  Sex: Female

DRUGS (2)
  1. TRAMADOL [Suspect]
     Active Substance: TRAMADOL\TRAMADOL HYDROCHLORIDE
     Indication: Product used for unknown indication
     Dosage: 1100 MILLIGRAM, ONCE A DAY ((DOSE DECREASE TO 2 TABLETS))
     Route: 065
  2. TRAMADOL [Suspect]
     Active Substance: TRAMADOL\TRAMADOL HYDROCHLORIDE
     Dosage: 1300 MILLIGRAM, ONCE A DAY ( (7 TABLETS IN MORNING AND 6 TABLETS IN EVENING))
     Route: 065

REACTIONS (1)
  - Epilepsy [Unknown]
